FAERS Safety Report 4430148-7 (Version None)
Quarter: 2004Q3

REPORT INFORMATION
  Report Type: 
  Country: None (occurrence: None)
  Receive Date: 20040820
  Receipt Date: 20040811
  Transmission Date: 20050211
  Serious: Yes (Life-Threatening, Hospitalization, Disabling)
  Sender: FDA-Public Use
  Company Number: PHEH2004US08787

PATIENT
  Age: 39 Year
  Sex: Female
  Weight: 60 kg

DRUGS (4)
  1. ZELNORM [Suspect]
     Indication: IRRITABLE BOWEL SYNDROME
     Dosage: 6 MG, QD
     Route: 048
     Dates: start: 20020917, end: 20040201
  2. SENOKOT [Concomitant]
  3. ESTROGEN NOS [Concomitant]
     Route: 062
     Dates: end: 20040201
  4. MIRALAX [Concomitant]

REACTIONS (3)
  - BIOPSY BREAST ABNORMAL [None]
  - BREAST CANCER METASTATIC [None]
  - MASTECTOMY [None]
